FAERS Safety Report 11249890 (Version 1)
Quarter: 2015Q3

REPORT INFORMATION
  Report Type: Spontaneous
  Country: US (occurrence: US)
  Receive Date: 20150708
  Receipt Date: 20150708
  Transmission Date: 20151125
  Serious: Yes (Death, Other)
  Sender: FDA-Public Use
  Company Number: US-ELI_LILLY_AND_COMPANY-US201008008086

PATIENT
  Sex: Female

DRUGS (9)
  1. CYTOXAN [Concomitant]
     Active Substance: CYCLOPHOSPHAMIDE
  2. VINCRISTINE [Concomitant]
     Active Substance: VINCRISTINE
  3. MESNA. [Concomitant]
     Active Substance: MESNA
  4. TOPOTECAN [Concomitant]
     Active Substance: TOPOTECAN\TOPOTECAN HYDROCHLORIDE
  5. TAXOTERE [Concomitant]
     Active Substance: DOCETAXEL
  6. GEMZAR [Suspect]
     Active Substance: GEMCITABINE HYDROCHLORIDE
     Indication: BONE CANCER
     Dosage: 675 MG/M2, UNK
     Dates: start: 20100405, end: 20100419
  7. ZOMETA [Concomitant]
     Active Substance: ZOLEDRONIC ACID
  8. TEMODAR [Concomitant]
     Active Substance: TEMOZOLOMIDE
  9. CAMPTOSAR [Concomitant]
     Active Substance: IRINOTECAN HYDROCHLORIDE

REACTIONS (6)
  - Malignant neoplasm progression [Fatal]
  - Back pain [Unknown]
  - Vision blurred [Unknown]
  - Fatigue [Unknown]
  - Off label use [Recovered/Resolved]
  - Paraesthesia [Unknown]
